FAERS Safety Report 20937923 (Version 1)
Quarter: 2022Q2

REPORT INFORMATION
  Report Type: Spontaneous
  Country: US (occurrence: US)
  Receive Date: 20220609
  Receipt Date: 20220609
  Transmission Date: 20220720
  Serious: No
  Sender: FDA-Public Use
  Company Number: US-BAUSCH-BL-2022-013931

PATIENT
  Age: 86 Year
  Sex: Female

DRUGS (1)
  1. DORZOLAMIDE HYDROCHLORIDE [Suspect]
     Active Substance: DORZOLAMIDE HYDROCHLORIDE
     Indication: Glaucoma
     Dosage: ONE DROP INTO BOTH EYES TWICE DAILY
     Route: 047
     Dates: start: 202205

REACTIONS (5)
  - Instillation site irritation [Recovered/Resolved]
  - Poor quality product administered [Unknown]
  - Product use complaint [Unknown]
  - Product deposit [Unknown]
  - Product quality issue [Unknown]

NARRATIVE: CASE EVENT DATE: 20220501
